FAERS Safety Report 19689111 (Version 3)
Quarter: 2022Q1

REPORT INFORMATION
  Report Type: Report from Study
  Country: US (occurrence: US)
  Receive Date: 20210812
  Receipt Date: 20220210
  Transmission Date: 20220423
  Serious: Yes (Other)
  Sender: FDA-Public Use
  Company Number: US-IPSEN BIOPHARMACEUTICALS, INC.-2021-19285

PATIENT
  Age: 65 Year
  Sex: Female

DRUGS (4)
  1. SOMATULINE DEPOT [Suspect]
     Active Substance: LANREOTIDE ACETATE
     Indication: Carcinoid tumour of the small bowel
     Dosage: 120 MG EVERY 3 WEEKS
     Route: 058
     Dates: start: 202001
  2. SOMATULINE DEPOT [Suspect]
     Active Substance: LANREOTIDE ACETATE
     Dosage: 120 MG EVERY 28 DAYS
     Route: 058
  3. SOMATULINE DEPOT [Suspect]
     Active Substance: LANREOTIDE ACETATE
     Route: 058
     Dates: start: 202101
  4. XERMELO [Suspect]
     Active Substance: TELOTRISTAT ETHYL
     Indication: Product used for unknown indication

REACTIONS (12)
  - Illness [Unknown]
  - Pyrexia [Unknown]
  - Burning sensation [Unknown]
  - Back pain [Unknown]
  - Abdominal pain [Unknown]
  - Pain [Unknown]
  - White blood cell count increased [Unknown]
  - Fatigue [Unknown]
  - Malaise [Unknown]
  - Chest X-ray abnormal [Unknown]
  - Hepatic enzyme increased [Unknown]
  - Off label use [Unknown]

NARRATIVE: CASE EVENT DATE: 20200101
